FAERS Safety Report 15880241 (Version 1)
Quarter: 2019Q1

REPORT INFORMATION
  Report Type: Spontaneous
  Country: US (occurrence: US)
  Receive Date: 20190104
  Receipt Date: 20190104
  Transmission Date: 20190417
  Serious: No
  Sender: FDA-Public Use
  Company Number: None

PATIENT
  Age: 22 Year
  Sex: Female

DRUGS (1)
  1. BOTOX [Suspect]
     Active Substance: ONABOTULINUMTOXINA
     Route: 060
     Dates: start: 201801

REACTIONS (3)
  - Drug ineffective [None]
  - Hyperhidrosis [None]
  - Condition aggravated [None]

NARRATIVE: CASE EVENT DATE: 20190103
